FAERS Safety Report 10216437 (Version 1)
Quarter: 2014Q2

REPORT INFORMATION
  Report Type: Spontaneous
  Country: US (occurrence: US)
  Receive Date: 20140604
  Receipt Date: 20140604
  Transmission Date: 20141212
  Serious: No
  Sender: FDA-Public Use
  Company Number: US-BAYER-2014-083151

PATIENT
  Sex: Male

DRUGS (2)
  1. ALEVE TABLET [Suspect]
     Dosage: 2 DF, PRN
     Route: 048
  2. ALEVE TABLET [Suspect]
     Dosage: 4 DF, IN A 24 HOUR PERIOD
     Route: 048
     Dates: start: 20140602, end: 20140602

REACTIONS (1)
  - Extra dose administered [None]
